FAERS Safety Report 9288915 (Version 2)
Quarter: 2013Q3

REPORT INFORMATION
  Report Type: Spontaneous
  Country: US (occurrence: US)
  Receive Date: 20130514
  Receipt Date: 20130703
  Transmission Date: 20140515
  Serious: Yes (Other)
  Sender: FDA-Public Use
  Company Number: US-GLAXOSMITHKLINE-A1022792A

PATIENT
  Age: 72 Year
  Sex: Female

DRUGS (7)
  1. ADVAIR [Suspect]
     Indication: ASTHMA
     Dosage: 1PUFF TWICE PER DAY
     Route: 055
     Dates: start: 201205
  2. VENTOLIN [Concomitant]
  3. ZEGERID [Concomitant]
  4. ANTIBIOTIC [Concomitant]
  5. VITAMIN B [Concomitant]
  6. CALCIUM [Concomitant]
  7. PREDNISONE [Concomitant]

REACTIONS (7)
  - Pneumonia [Recovering/Resolving]
  - Dyspnoea [Recovering/Resolving]
  - Atelectasis [Recovering/Resolving]
  - Increased upper airway secretion [Unknown]
  - Rhinorrhoea [Recovering/Resolving]
  - Drug administration error [Recovering/Resolving]
  - Product quality issue [Unknown]
